FAERS Safety Report 20164386 (Version 1)
Quarter: 2021Q4

REPORT INFORMATION
  Report Type: Spontaneous
  Country: CN (occurrence: None)
  Receive Date: 20211209
  Receipt Date: 20211209
  Transmission Date: 20220304
  Serious: Yes (Hospitalization, Disabling, Other)
  Sender: FDA-Public Use
  Company Number: 2021A853031

PATIENT
  Age: 47 Year
  Sex: Female

DRUGS (3)
  1. SEROQUEL [Suspect]
     Active Substance: QUETIAPINE FUMARATE
     Indication: Depression
     Route: 048
     Dates: start: 20151101, end: 20211129
  2. CLONAZEPAM [Suspect]
     Active Substance: CLONAZEPAM
     Indication: Sleep disorder
     Route: 048
     Dates: start: 20211022, end: 20211120
  3. HERBALS [Suspect]
     Active Substance: HERBALS
     Indication: Sleep disorder
     Dosage: 4 CAPSULES, TWICE EVERY ONE DAY
     Route: 048
     Dates: start: 20211022, end: 20211116

REACTIONS (5)
  - Hepatic function abnormal [Recovering/Resolving]
  - Papillary thyroid cancer [Unknown]
  - Asthenia [Unknown]
  - Decreased appetite [Unknown]
  - Jaundice [Unknown]

NARRATIVE: CASE EVENT DATE: 20211116
